FAERS Safety Report 11886697 (Version 2)
Quarter: 2016Q1

REPORT INFORMATION
  Report Type: Spontaneous
  Country: US (occurrence: US)
  Receive Date: 20160104
  Receipt Date: 20160108
  Transmission Date: 20160526
  Serious: Yes (Other)
  Sender: FDA-Public Use
  Company Number: US-SA-2015SA222241

PATIENT
  Age: 74 Year
  Sex: Male

DRUGS (2)
  1. LANTUS SOLOSTAR [Suspect]
     Active Substance: INSULIN GLARGINE
     Indication: TYPE 2 DIABETES MELLITUS
     Route: 065
     Dates: start: 2005
  2. SOLOSTAR [Concomitant]
     Active Substance: DEVICE
     Dates: start: 2005

REACTIONS (6)
  - Hyperhidrosis [Unknown]
  - Cerebrovascular accident [Unknown]
  - Blindness [Unknown]
  - Blood glucose decreased [Unknown]
  - Tremor [Unknown]
  - Macular degeneration [Unknown]
